FAERS Safety Report 8460536-3 (Version None)
Quarter: 2012Q2

REPORT INFORMATION
  Report Type: 
  Country: None (occurrence: None)
  Receive Date: 20120622
  Receipt Date: 20120618
  Transmission Date: 20120825
  Serious: Yes (Hospitalization)
  Sender: FDA-Public Use
  Company Number: US-AMGEN-USASP2011040198

PATIENT
  Age: 56 Year
  Sex: Female

DRUGS (9)
  1. ADVAIR DISKUS 100/50 [Concomitant]
     Dosage: UNK
  2. KLONOPIN [Concomitant]
     Dosage: UNK
  3. ALBUTEROL [Concomitant]
     Dosage: UNK
  4. VENTOLIN [Concomitant]
     Dosage: UNK
  5. ENBREL [Suspect]
     Indication: PSORIASIS
     Dosage: 50 MG, 2 TIMES/WK
     Dates: start: 20110101
  6. SPIRIVA [Concomitant]
     Dosage: UNK
  7. LASIX [Concomitant]
     Dosage: UNK
  8. FISH OIL [Concomitant]
     Dosage: UNK
  9. ULTRAM [Concomitant]
     Dosage: UNK

REACTIONS (5)
  - INCISION SITE ABSCESS [None]
  - INCISION SITE COMPLICATION [None]
  - URINARY TRACT INFECTION [None]
  - HERNIA [None]
  - CHRONIC OBSTRUCTIVE PULMONARY DISEASE [None]
